FAERS Safety Report 5262320-0 (Version None)
Quarter: 2007Q1

REPORT INFORMATION
  Report Type: 
  Country: None (occurrence: None)
  Receive Date: 20070308
  Receipt Date: 20070228
  Transmission Date: 20070707
  Serious: Yes (Death)
  Sender: FDA-Public Use
  Company Number: GXKR2007DE01959

PATIENT
  Age: 79 Year
  Sex: Female

DRUGS (3)
  1. DICLAC (NGX) (DICLOFENAC) SOLUTION FOR INJECTION [Suspect]
     Indication: SCIATICA
     Dosage: 75 MG, ONCE/SINGLE, INTRAMUSCULAR
     Route: 030
     Dates: start: 20070222, end: 20070222
  2. FLECAINIDE ACETATE [Concomitant]
  3. CARBIMAZOLE (CARBIMAZOLE) [Concomitant]

REACTIONS (2)
  - ANAPHYLACTIC SHOCK [None]
  - MULTI-ORGAN FAILURE [None]
